FAERS Safety Report 8471154-5 (Version None)
Quarter: 2012Q2

REPORT INFORMATION
  Report Type: 
  Country: None (occurrence: None)
  Receive Date: 20120627
  Receipt Date: 20120621
  Transmission Date: 20120825
  Serious: Yes (Other)
  Sender: FDA-Public Use
  Company Number: US-PFIZER INC-2012115586

PATIENT
  Sex: Male
  Weight: 81.633 kg

DRUGS (4)
  1. PROTONIX [Concomitant]
     Indication: GASTROOESOPHAGEAL REFLUX DISEASE
     Dosage: 20 MG, DAILY
  2. WELLBUTRIN XL [Concomitant]
     Indication: MAJOR DEPRESSION
     Dosage: 300 XL, DAILY
  3. TRAZODONE [Concomitant]
     Indication: INSOMNIA
     Dosage: 50 MG, DAILY
  4. PRISTIQ [Suspect]
     Indication: MAJOR DEPRESSION
     Dosage: 100 MG, 2X/DAY
     Route: 048
     Dates: start: 20110331

REACTIONS (4)
  - MEDICATION RESIDUE [None]
  - WRONG TECHNIQUE IN DRUG USAGE PROCESS [None]
  - DIARRHOEA [None]
  - CHOLECYSTITIS [None]
